FAERS Safety Report 7730007-8 (Version None)
Quarter: 2011Q3

REPORT INFORMATION
  Report Type: 
  Country: None (occurrence: None)
  Receive Date: 20110906
  Receipt Date: 20110825
  Transmission Date: 20111222
  Serious: Yes (Other)
  Sender: FDA-Public Use
  Company Number: PHHY2011CA76658

PATIENT
  Sex: Female

DRUGS (1)
  1. ZOLEDRONOC ACID [Suspect]
     Indication: OSTEOPOROSIS
     Dosage: UNK UKN, UNK
     Route: 042
     Dates: start: 20101018

REACTIONS (5)
  - PAIN [None]
  - WOUND HAEMORRHAGE [None]
  - PAIN IN EXTREMITY [None]
  - WOUND COMPLICATION [None]
  - JOINT SWELLING [None]
